FAERS Safety Report 7339146-7 (Version None)
Quarter: 2011Q1

REPORT INFORMATION
  Report Type: 
  Country: None (occurrence: None)
  Receive Date: 20110308
  Receipt Date: 20110223
  Transmission Date: 20110831
  Serious: Yes (Hospitalization, Other)
  Sender: FDA-Public Use
  Company Number: PHHY2010BR82127

PATIENT
  Sex: Male

DRUGS (5)
  1. CHEMOTHERAPEUTICS NOS [Concomitant]
  2. FORASEQ [Suspect]
     Dosage: UNK
     Dates: end: 20101208
  3. DIPYRONE [Concomitant]
     Indication: PAIN
     Dosage: 500 MG,01 TABLET EVERY 06HOURS
     Route: 048
  4. FUROSEMIDE [Concomitant]
     Dosage: 40 MG, 01 TABLET DAILY
     Route: 048
  5. FORASEQ [Suspect]
     Indication: EMPHYSEMA
     Dosage: 1 DF, BID
     Dates: start: 20101103

REACTIONS (6)
  - HAEMOPTYSIS [None]
  - DRUG DOSE OMISSION [None]
  - PAIN [None]
  - EMPHYSEMA [None]
  - DEVICE MALFUNCTION [None]
  - LUNG NEOPLASM MALIGNANT [None]
